FAERS Safety Report 14020567 (Version 1)
Quarter: 2017Q3

REPORT INFORMATION
  Report Type: Spontaneous
  Country: US (occurrence: US)
  Receive Date: 20170928
  Receipt Date: 20170928
  Transmission Date: 20171128
  Serious: Yes (Other)
  Sender: FDA-Public Use
  Company Number: US-PFIZER INC-2006132906

PATIENT
  Sex: Male

DRUGS (3)
  1. CELEBREX [Suspect]
     Active Substance: CELECOXIB
     Dosage: UNK
  2. BEXTRA [Suspect]
     Active Substance: VALDECOXIB
     Dosage: UNK
  3. VIOXX [Suspect]
     Active Substance: ROFECOXIB
     Dosage: UNK
     Dates: start: 20010101, end: 20041015

REACTIONS (1)
  - Ischaemic stroke [Unknown]

NARRATIVE: CASE EVENT DATE: 20041106
